FAERS Safety Report 10074463 (Version 1)
Quarter: 2014Q2

REPORT INFORMATION
  Report Type: Spontaneous
  Country: US (occurrence: US)
  Receive Date: 20140411
  Receipt Date: 20140411
  Transmission Date: 20141212
  Serious: No
  Sender: FDA-Public Use
  Company Number: US-SANOFI-AVENTIS-2013SA094796

PATIENT
  Age: 70 Year
  Sex: Male

DRUGS (3)
  1. ALLEGRA-D, 12 HR [Suspect]
     Indication: EAR DISORDER
     Route: 048
     Dates: start: 20130916, end: 20130923
  2. NASONEX [Concomitant]
  3. ASPIRIN [Concomitant]
     Route: 065

REACTIONS (6)
  - Tendon disorder [Not Recovered/Not Resolved]
  - Arthralgia [Not Recovered/Not Resolved]
  - Tendon pain [Recovered/Resolved]
  - Insomnia [Not Recovered/Not Resolved]
  - Drug ineffective [Unknown]
  - Off label use [Unknown]
